FAERS Safety Report 21098665 (Version 1)
Quarter: 2022Q3

REPORT INFORMATION
  Report Type: Spontaneous
  Country: US (occurrence: US)
  Receive Date: 20220719
  Receipt Date: 20220719
  Transmission Date: 20221026
  Serious: No
  Sender: FDA-Public Use
  Company Number: US-JNJFOC-20220713630

PATIENT
  Age: 59 Year
  Sex: Female

DRUGS (11)
  1. TYLENOL [Suspect]
     Active Substance: ACETAMINOPHEN
     Indication: Headache
     Route: 065
  2. TYLENOL [Suspect]
     Active Substance: ACETAMINOPHEN
     Indication: Nausea
  3. TYLENOL [Suspect]
     Active Substance: ACETAMINOPHEN
     Indication: Flushing
  4. TYLENOL [Suspect]
     Active Substance: ACETAMINOPHEN
     Indication: Vomiting
  5. TRAMADOL [Suspect]
     Active Substance: TRAMADOL
     Indication: Headache
     Route: 065
  6. TRAMADOL [Suspect]
     Active Substance: TRAMADOL
     Indication: Nausea
  7. TRAMADOL [Suspect]
     Active Substance: TRAMADOL
     Indication: Flushing
  8. TRAMADOL [Suspect]
     Active Substance: TRAMADOL
     Indication: Vomiting
  9. ORENITRAM [Concomitant]
     Active Substance: TREPROSTINIL
     Indication: Pulmonary arterial hypertension
     Route: 048
     Dates: start: 20190226
  10. ORENITRAM [Concomitant]
     Active Substance: TREPROSTINIL
     Route: 048
  11. ORENITRAM [Concomitant]
     Active Substance: TREPROSTINIL
     Route: 048

REACTIONS (1)
  - Product use in unapproved indication [Unknown]
